FAERS Safety Report 18940991 (Version 1)
Quarter: 2021Q1

REPORT INFORMATION
  Report Type: Spontaneous
  Country: US (occurrence: US)
  Receive Date: 20210225
  Receipt Date: 20210225
  Transmission Date: 20210420
  Serious: No
  Sender: FDA-Public Use
  Company Number: US-MYLANLABS-2021M1010121

PATIENT
  Age: 78 Year
  Sex: Female
  Weight: 63 kg

DRUGS (1)
  1. ESTRADIOL VAGINAL CREAM USP [Suspect]
     Active Substance: ESTRADIOL
     Indication: VULVOVAGINAL DRYNESS
     Dosage: 0.01 PERCENT
     Route: 067

REACTIONS (2)
  - Vulval disorder [Not Recovered/Not Resolved]
  - Application site irritation [Not Recovered/Not Resolved]
